FAERS Safety Report 16215621 (Version 1)
Quarter: 2019Q2

REPORT INFORMATION
  Report Type: Spontaneous
  Country: US (occurrence: US)
  Receive Date: 20190418
  Receipt Date: 20190418
  Transmission Date: 20190711
  Serious: Yes (Life-Threatening, Hospitalization, Disabling)
  Sender: FDA-Public Use
  Company Number: None

PATIENT
  Age: 41 Year
  Sex: Female
  Weight: 92.25 kg

DRUGS (21)
  1. NOVOLOG [Concomitant]
     Active Substance: INSULIN ASPART
  2. VITAMIN B12 [Concomitant]
     Active Substance: CYANOCOBALAMIN
  3. COQ10 [Concomitant]
     Active Substance: UBIDECARENONE
  4. BOTOX [Suspect]
     Active Substance: ONABOTULINUMTOXINA
     Indication: MUSCLE TIGHTNESS
     Dosage: ?          OTHER STRENGTH:100;QUANTITY:12 100;?
     Route: 058
     Dates: start: 20190227
  5. INSULIN PUMP [Concomitant]
     Active Substance: INSULIN NOS
  6. DEXCOM [Concomitant]
  7. ADDERALL [Concomitant]
     Active Substance: AMPHETAMINE ASPARTATE\AMPHETAMINE SULFATE\DEXTROAMPHETAMINE SACCHARATE\DEXTROAMPHETAMINE SULFATE
  8. VITAMIN C [Concomitant]
     Active Substance: ASCORBIC ACID
  9. ATORVASTATIN [Concomitant]
     Active Substance: ATORVASTATIN
  10. IRON [Concomitant]
     Active Substance: IRON
  11. MAGNESIUM [Concomitant]
     Active Substance: MAGNESIUM
  12. VITAMIN E [Concomitant]
     Active Substance: .ALPHA.-TOCOPHEROL
  13. COLAGEN SUPPLEMENT [Concomitant]
  14. BOTOX [Suspect]
     Active Substance: ONABOTULINUMTOXINA
     Indication: PAIN
     Dosage: ?          OTHER STRENGTH:100;QUANTITY:12 100;?
     Route: 058
     Dates: start: 20190227
  15. QUETIAPINE. [Concomitant]
     Active Substance: QUETIAPINE
  16. SALMON OIL [Concomitant]
     Active Substance: FISH OIL
  17. VITAMIN D [Concomitant]
     Active Substance: VITAMIN D NOS
  18. CALCIUM [Concomitant]
     Active Substance: CALCIUM
  19. TURMERIC [Concomitant]
     Active Substance: HERBALS\TURMERIC
  20. LISINOPRIL. [Concomitant]
     Active Substance: LISINOPRIL
  21. VENLAFAXINE [Concomitant]
     Active Substance: VENLAFAXINE HYDROCHLORIDE

REACTIONS (4)
  - Asthenia [None]
  - Toxicity to various agents [None]
  - Systemic toxicity [None]
  - Pain [None]

NARRATIVE: CASE EVENT DATE: 20190308
